FAERS Safety Report 4906147-5 (Version None)
Quarter: 2006Q1

REPORT INFORMATION
  Report Type: 
  Country: None (occurrence: None)
  Receive Date: 20060209
  Receipt Date: 20060125
  Transmission Date: 20060701
  Serious: Yes (Hospitalization, Other)
  Sender: FDA-Public Use
  Company Number: JP-BRISTOL-MYERS SQUIBB COMPANY-13266671

PATIENT
  Age: 75 Year
  Sex: Female

DRUGS (5)
  1. ENDOXAN [Suspect]
     Indication: NON-HODGKIN'S LYMPHOMA STAGE II
     Dates: start: 19970701, end: 19980101
  2. DOXORUBICIN HCL [Suspect]
     Indication: NON-HODGKIN'S LYMPHOMA STAGE II
     Dates: start: 19970701, end: 19980101
  3. ETOPOSIDE [Suspect]
     Indication: NON-HODGKIN'S LYMPHOMA STAGE II
     Route: 048
     Dates: start: 19980201, end: 20000501
  4. VINCRISTINE SULFATE [Suspect]
     Indication: NON-HODGKIN'S LYMPHOMA STAGE II
     Dates: start: 19970701, end: 19980101
  5. PREDONINE [Suspect]
     Dates: start: 19970701, end: 19980101

REACTIONS (3)
  - ACUTE PROMYELOCYTIC LEUKAEMIA [None]
  - DISSEMINATED INTRAVASCULAR COAGULATION [None]
  - TREATMENT RELATED SECONDARY MALIGNANCY [None]
